FAERS Safety Report 6091553-9 (Version None)
Quarter: 2009Q1

REPORT INFORMATION
  Report Type: 
  Country: None (occurrence: None)
  Receive Date: 20090225
  Receipt Date: 20080611
  Transmission Date: 20090719
  Serious: No
  Sender: FDA-Public Use
  Company Number: A0621975A

PATIENT
  Sex: Female

DRUGS (2)
  1. VALTREX [Suspect]
     Indication: HERPES VIRUS INFECTION
     Route: 048
  2. ABREVA [Suspect]
     Indication: HERPES VIRUS INFECTION
     Route: 061

REACTIONS (3)
  - CHEILITIS [None]
  - HYPERSENSITIVITY [None]
  - STOMATITIS [None]
